FAERS Safety Report 9789459 (Version 2)
Quarter: 2014Q1

REPORT INFORMATION
  Report Type: Spontaneous
  Country: US (occurrence: US)
  Receive Date: 20131231
  Receipt Date: 20140109
  Transmission Date: 20141002
  Serious: Yes (Other)
  Sender: FDA-Public Use
  Company Number: US-ROCHE-1327388

PATIENT
  Age: 66 Year
  Sex: Male

DRUGS (6)
  1. RANIBIZUMAB [Suspect]
     Indication: CYSTOID MACULAR OEDEMA
     Dosage: 0.5/0.05MG/ML
     Route: 050
  2. RANIBIZUMAB [Suspect]
     Indication: RETINAL VEIN OCCLUSION
  3. HYDROCHLOROTHIAZIDE [Concomitant]
  4. DOXYCYCLINE [Concomitant]
  5. OMEPRAZOLE [Concomitant]
  6. PREDNISONE [Concomitant]

REACTIONS (2)
  - Intraocular pressure increased [Recovered/Resolved]
  - Hyphaema [Unknown]
